FAERS Safety Report 8415972-8 (Version None)
Quarter: 2012Q2

REPORT INFORMATION
  Report Type: 
  Country: None (occurrence: None)
  Receive Date: 20120606
  Receipt Date: 20110620
  Transmission Date: 20120825
  Serious: Yes (Hospitalization, Other)
  Sender: FDA-Public Use
  Company Number: US-PFIZER INC-2011146605

PATIENT
  Age: 61 Year
  Sex: Female

DRUGS (13)
  1. MORPHINE [Concomitant]
     Dosage: UNK
     Route: 065
     Dates: start: 20100413
  2. IBUPROFEN [Suspect]
     Indication: ABDOMINAL PAIN
     Dosage: 400 MG, UNK
     Route: 048
     Dates: start: 20110108, end: 20110608
  3. INVESTIGATIONAL DRUG [Suspect]
     Dosage: 20 MG TWICE DAILY
     Dates: start: 20100205, end: 20110109
  4. ACETAMINOPHEN [Concomitant]
     Dosage: UNK
     Route: 065
     Dates: start: 20090401
  5. LORAZEPAM [Concomitant]
     Dosage: UNK
     Route: 065
     Dates: start: 20091231
  6. FLUTICASONE [Concomitant]
     Dosage: UNK
     Route: 065
     Dates: start: 20080101
  7. MULTI-VITAMINS [Concomitant]
     Dosage: UNK
  8. MACROGOL [Concomitant]
     Dosage: UNK
     Route: 065
     Dates: start: 20100308
  9. IRBESARTAN [Concomitant]
     Dosage: UNK
     Route: 065
     Dates: start: 20100302
  10. HYDROCHLOROTHIAZIDE [Concomitant]
     Dosage: UNK
     Route: 065
     Dates: start: 20100325
  11. GABAPENTIN [Concomitant]
     Dosage: UNK
     Route: 065
     Dates: start: 20091220
  12. ALBUTEROL [Concomitant]
     Dosage: UNK
     Route: 065
     Dates: start: 20090724
  13. INVESTIGATIONAL DRUG [Suspect]
     Indication: MYELOFIBROSIS
     Dosage: 15 MG TWICE DAILY
     Route: 065
     Dates: start: 20100111, end: 20100205

REACTIONS (11)
  - BLOOD PRESSURE SYSTOLIC INCREASED [None]
  - PLATELET COUNT DECREASED [None]
  - RED BLOOD CELL COUNT DECREASED [None]
  - SPLENOMEGALY [None]
  - BLOOD PRESSURE SYSTOLIC DECREASED [None]
  - GASTROINTESTINAL HAEMORRHAGE [None]
  - COAGULOPATHY [None]
  - LACERATION [None]
  - HAEMATOCRIT DECREASED [None]
  - HAEMOGLOBIN DECREASED [None]
  - HEART RATE INCREASED [None]
